FAERS Safety Report 23027290 (Version 1)
Quarter: 2023Q4

REPORT INFORMATION
  Report Type: Spontaneous
  Country: ES (occurrence: ES)
  Receive Date: 20231004
  Receipt Date: 20231004
  Transmission Date: 20240110
  Serious: Yes (Other)
  Sender: FDA-Public Use
  Company Number: None

PATIENT
  Age: 62 Year
  Sex: Male

DRUGS (3)
  1. NEOTIGASON [Suspect]
     Active Substance: ACITRETIN
     Indication: Product used for unknown indication
     Dosage: 30 CAPSULES
     Dates: start: 20210625, end: 20210820
  2. ENSTILAR [Concomitant]
     Active Substance: BETAMETHASONE DIPROPIONATE\CALCIPOTRIENE HYDRATE
     Indication: Product used for unknown indication
     Dosage: 60 G, FORM STRENGTH : 50 MICROGRAMS/G + 0.5 MG/G
     Dates: start: 20210611
  3. CALCIFEDIOL [Concomitant]
     Active Substance: CALCIFEDIOL
     Indication: Product used for unknown indication
     Dosage: 10 CAPSULES (PVC/PVDC-ALUMINUM BLISTER)
     Dates: start: 20210625

REACTIONS (1)
  - Renal impairment [Recovered/Resolved]

NARRATIVE: CASE EVENT DATE: 20210820
